FAERS Safety Report 7381727-9 (Version None)
Quarter: 2011Q1

REPORT INFORMATION
  Report Type: 
  Country: None (occurrence: None)
  Receive Date: 20110329
  Receipt Date: 20110316
  Transmission Date: 20110831
  Serious: Yes (Hospitalization)
  Sender: FDA-Public Use
  Company Number: US-ASTRAZENECA-2011SE15251

PATIENT
  Age: 46 Year
  Sex: Male

DRUGS (1)
  1. METOPROLOL SUCCINATE [Suspect]
     Route: 048

REACTIONS (4)
  - HEART RATE INCREASED [None]
  - DRUG INEFFECTIVE [None]
  - CHEST PAIN [None]
  - BLOOD PRESSURE INCREASED [None]
